FAERS Safety Report 7750001-0 (Version None)
Quarter: 2011Q3

REPORT INFORMATION
  Report Type: 
  Country: None (occurrence: None)
  Receive Date: 20110912
  Receipt Date: 20110831
  Transmission Date: 20111222
  Serious: Yes (Other)
  Sender: FDA-Public Use
  Company Number: 2011SP041050

PATIENT
  Age: 32 Year
  Sex: Female

DRUGS (1)
  1. CERAZETTE (DESOGESTREL /00754001/) [Suspect]
     Indication: PRODUCT USED FOR UNKNOWN INDICATION

REACTIONS (5)
  - ABDOMINAL PAIN [None]
  - ENDOMETRIAL DISORDER [None]
  - INAPPROPRIATE SCHEDULE OF DRUG ADMINISTRATION [None]
  - POLYCYSTIC OVARIES [None]
  - MENSTRUATION DELAYED [None]
